FAERS Safety Report 4980829-1 (Version None)
Quarter: 2006Q2

REPORT INFORMATION
  Report Type: 
  Country: None (occurrence: None)
  Receive Date: 20060424
  Receipt Date: 20051206
  Transmission Date: 20061013
  Serious: Yes (Hospitalization)
  Sender: FDA-Public Use
  Company Number: US-MERCK-0512USA00837

PATIENT
  Age: 79 Year
  Sex: Male
  Weight: 82 kg

DRUGS (5)
  1. VIOXX [Suspect]
     Indication: ARTHRITIS
     Route: 048
     Dates: start: 20000101, end: 20040101
  2. LIPITOR [Concomitant]
     Route: 065
  3. INSULIN [Concomitant]
     Route: 065
  4. NEXIUM [Concomitant]
     Route: 065
  5. ASPIRIN [Concomitant]
     Route: 065
     Dates: start: 19980101

REACTIONS (4)
  - ANGINA PECTORIS [None]
  - CHOLELITHIASIS [None]
  - HYPERTENSION [None]
  - MYOCARDIAL INFARCTION [None]
